FAERS Safety Report 8600427-8 (Version None)
Quarter: 2012Q3

REPORT INFORMATION
  Report Type: 
  Country: None (occurrence: None)
  Receive Date: 20120802
  Receipt Date: 20120720
  Transmission Date: 20120928
  Serious: Yes (Other)
  Sender: FDA-Public Use
  Company Number: TUK2012A00168

PATIENT
  Age: 56 Year
  Sex: Male

DRUGS (5)
  1. METFFORMIN HYDROCHLORIDE [Concomitant]
  2. LISINOPRIL [Concomitant]
  3. ACETONE (ACETONE) [Suspect]
     Indication: PRODUCT USED FOR UNKNOWN INDICATION
  4. PIOGLITAZONE [Suspect]
     Indication: PRODUCT USED FOR UNKNOWN INDICATION
  5. STATIN NOS [Concomitant]

REACTIONS (3)
  - IRON DEFICIENCY ANAEMIA [None]
  - METHAEMOGLOBINAEMIA [None]
  - HAEMOLYTIC ANAEMIA [None]
